FAERS Safety Report 22263002 (Version 1)
Quarter: 2023Q2

REPORT INFORMATION
  Report Type: Report from Study
  Country: CA (occurrence: CA)
  Receive Date: 20230428
  Receipt Date: 20230428
  Transmission Date: 20230722
  Serious: Yes (Other)
  Sender: FDA-Public Use
  Company Number: CA-JNJFOC-20230455141

PATIENT
  Sex: Female

DRUGS (2)
  1. REMICADE [Suspect]
     Active Substance: INFLIXIMAB
     Indication: Colitis ulcerative
     Route: 042
     Dates: start: 20220804
  2. REMICADE [Suspect]
     Active Substance: INFLIXIMAB
     Dosage: RELOAD 10MG/KG AT WEEK 0,1, EVERY 4 WEEKS
     Route: 042

REACTIONS (2)
  - Colitis ulcerative [Unknown]
  - Drug level abnormal [Unknown]
